FAERS Safety Report 10675725 (Version 1)
Quarter: 2014Q4

REPORT INFORMATION
  Report Type: Spontaneous
  Country: US (occurrence: US)
  Receive Date: 20141224
  Receipt Date: 20141224
  Transmission Date: 20150529
  Serious: No
  Sender: FDA-Public Use
  Company Number: US-ACORDA-ACO_102930_2014

PATIENT
  Sex: Female
  Weight: 86.17 kg

DRUGS (1)
  1. TIZANIDINE (TIZANIDINE) [Suspect]
     Active Substance: TIZANIDINE
     Indication: PRODUCT USED FOR UNKNOWN INDICATION
     Dosage: 4 MG, 1-2 TABS DAILY
     Route: 048

REACTIONS (3)
  - Speech disorder [Unknown]
  - Dry mouth [Unknown]
  - Lip dry [Unknown]
